FAERS Safety Report 12763003 (Version 3)
Quarter: 2016Q4

REPORT INFORMATION
  Report Type: Spontaneous
  Country: US (occurrence: US)
  Receive Date: 20160920
  Receipt Date: 20161005
  Transmission Date: 20170207
  Serious: No
  Sender: FDA-Public Use
  Company Number: US-PFIZER INC-2016434381

PATIENT
  Age: 71 Year
  Sex: Female

DRUGS (3)
  1. IBRANCE [Suspect]
     Active Substance: PALBOCICLIB
     Dosage: 125 MG, UNK
     Dates: start: 20160831, end: 20160914
  2. IBRANCE [Suspect]
     Active Substance: PALBOCICLIB
     Dosage: 100 MG, UNK
     Dates: start: 20160922
  3. IBRANCE [Suspect]
     Active Substance: PALBOCICLIB
     Dosage: 100 MG, UNK
     Dates: start: 20161002

REACTIONS (9)
  - Platelet count decreased [Unknown]
  - Blood calcium increased [Unknown]
  - Eating disorder [Unknown]
  - Dyspepsia [Not Recovered/Not Resolved]
  - Dehydration [Unknown]
  - White blood cell count decreased [Unknown]
  - Vomiting [Unknown]
  - Nausea [Unknown]
  - Blood creatine increased [Unknown]
